FAERS Safety Report 21518404 (Version 1)
Quarter: 2022Q4

REPORT INFORMATION
  Report Type: Other
  Country: US (occurrence: None)
  Receive Date: 20221028
  Receipt Date: 20221028
  Transmission Date: 20230113
  Serious: Yes (Hospitalization)
  Sender: FDA-Public Use
  Company Number: US-ROCHE-3206799

PATIENT
  Age: 74 Year
  Sex: Male

DRUGS (2)
  1. ERIVEDGE [Suspect]
     Active Substance: VISMODEGIB
     Indication: Malignant melanoma
     Dosage: TAKE 1 TABLET BY MOUTH (150MG) DAILY
     Route: 048
  2. ERIVEDGE [Suspect]
     Active Substance: VISMODEGIB
     Indication: Osteosarcoma

REACTIONS (2)
  - Epistaxis [Unknown]
  - Off label use [Unknown]
